FAERS Safety Report 11771347 (Version 1)
Quarter: 2015Q4

REPORT INFORMATION
  Report Type: Other
  Country: TR (occurrence: TR)
  Receive Date: 20151124
  Receipt Date: 20151124
  Transmission Date: 20160304
  Serious: Yes (Death)
  Sender: FDA-Public Use
  Company Number: TR-ACTELION-A-CH2015-127519

PATIENT
  Age: 2 Year

DRUGS (1)
  1. ZAVESCA [Suspect]
     Active Substance: MIGLUSTAT
     Indication: LIPIDOSIS
     Dosage: 100 MG, QD
     Route: 048

REACTIONS (3)
  - Neurological decompensation [Not Recovered/Not Resolved]
  - Pneumonia [Fatal]
  - Sepsis [Fatal]
